FAERS Safety Report 24800832 (Version 1)
Quarter: 2025Q1

REPORT INFORMATION
  Report Type: Report from Study
  Country: CO (occurrence: CO)
  Receive Date: 20250102
  Receipt Date: 20250102
  Transmission Date: 20250408
  Serious: Yes (Hospitalization, Other)
  Sender: UCB
  Company Number: CO-UCBSA-2025000103

PATIENT
  Age: 17 Year
  Sex: Female

DRUGS (2)
  1. LACOSAMIDE [Suspect]
     Active Substance: LACOSAMIDE
     Indication: Epilepsy
     Dosage: 4 MILLILITER PER 12 HOURS
     Route: 048
     Dates: start: 20240923, end: 20241127
  2. LACOSAMIDE [Suspect]
     Active Substance: LACOSAMIDE
     Dosage: 5 MILLILITER PER 12 HOURS
     Route: 048
     Dates: start: 20241128

REACTIONS (5)
  - Internal haemorrhage [Not Recovered/Not Resolved]
  - Pyrexia [Recovered/Resolved]
  - Vomiting [Not Recovered/Not Resolved]
  - Cyst [Recovered/Resolved]
  - Cyst removal [Not Recovered/Not Resolved]

NARRATIVE: CASE EVENT DATE: 20241127
